FAERS Safety Report 15192135 (Version 4)
Quarter: 2019Q2

REPORT INFORMATION
  Report Type: Report from Study
  Country: US (occurrence: US)
  Receive Date: 20180724
  Receipt Date: 20190416
  Transmission Date: 20190711
  Serious: Yes (Hospitalization, Other)
  Sender: FDA-Public Use
  Company Number: US-EXELIXIS-XL18418015016

PATIENT
  Age: 69 Year
  Sex: Female
  Weight: 54.3 kg

DRUGS (17)
  1. ONDANSETRON [Concomitant]
     Active Substance: ONDANSETRON
  2. PROBIOTIC [Concomitant]
     Active Substance: PROBIOTICS NOS
  3. PSYLLIUM [Concomitant]
     Active Substance: PLANTAGO SEED
  4. ATORVASTATIN [Concomitant]
     Active Substance: ATORVASTATIN
  5. CETIRIZINE [Concomitant]
     Active Substance: CETIRIZINE HYDROCHLORIDE
  6. XL184 [Suspect]
     Active Substance: CABOZANTINIB
     Dosage: 40 MG, QD
     Route: 048
     Dates: start: 20180727
  7. ASPIRIN. [Concomitant]
     Active Substance: ASPIRIN
  8. FISH OIL [Concomitant]
     Active Substance: FISH OIL
  9. PROCHLORPERAZINE. [Concomitant]
     Active Substance: PROCHLORPERAZINE
  10. ACETAMINOPHEN. [Concomitant]
     Active Substance: ACETAMINOPHEN
  11. CHOLECALCIFEROL [Concomitant]
     Active Substance: CHOLECALCIFEROL
  12. ATEZOLIZUMAB. [Suspect]
     Active Substance: ATEZOLIZUMAB
     Indication: TRANSITIONAL CELL CARCINOMA
     Dosage: 1200 MG, Q3WEEKS
     Route: 042
     Dates: start: 20180627, end: 20180720
  13. LISINOPRIL. [Concomitant]
     Active Substance: LISINOPRIL
  14. XL184 [Suspect]
     Active Substance: CABOZANTINIB
     Indication: TRANSITIONAL CELL CARCINOMA
     Dosage: 40 MG, QD
     Route: 048
     Dates: start: 20180627, end: 20180711
  15. ATEZOLIZUMAB. [Suspect]
     Active Substance: ATEZOLIZUMAB
     Dosage: 1200 MG, Q3WEEKS
     Route: 042
     Dates: start: 20180727
  16. LIDOCAINE. [Concomitant]
     Active Substance: LIDOCAINE
  17. SULFAMETHOXAZOLE AND TRIMETHOPRIM [Concomitant]
     Active Substance: SULFAMETHOXAZOLE\TRIMETHOPRIM

REACTIONS (3)
  - Rash maculo-papular [Recovered/Resolved]
  - Pyrexia [Recovered/Resolved]
  - Fatigue [Recovered/Resolved]

NARRATIVE: CASE EVENT DATE: 20180703
